FAERS Safety Report 8831289 (Version 2)
Quarter: 2012Q4

REPORT INFORMATION
  Report Type: 
  Country: SE (occurrence: SE)
  Receive Date: 20121008
  Receipt Date: 20121023
  Transmission Date: 20130627
  Serious: Yes (Other)
  Sender: FDA-Public Use
  Company Number: SE-PFIZER INC-2012242593

PATIENT
  Age: 85 Year
  Sex: Male

DRUGS (2)
  1. TERRA-CORTRIL [Suspect]
     Indication: INFECTION
     Dosage: UNK
     Dates: start: 2011
  2. ARTELAC [Concomitant]
     Dosage: UNK

REACTIONS (2)
  - Keratorhexis [Unknown]
  - Visual impairment [Unknown]
